FAERS Safety Report 10032481 (Version 3)
Quarter: 2014Q2

REPORT INFORMATION
  Report Type: Spontaneous
  Country: US (occurrence: US)
  Receive Date: 20140324
  Receipt Date: 20140507
  Transmission Date: 20141212
  Serious: Yes (Other)
  Sender: FDA-Public Use
  Company Number: US-IPSEN BIOPHARMACEUTICALS, INC.-2014-1393

PATIENT
  Age: 39 Year
  Sex: Female
  Weight: 64 kg

DRUGS (4)
  1. DYSPORT [Suspect]
     Indication: SKIN WRINKLING
     Dosage: 48 UNITS
     Route: 065
     Dates: start: 20140207, end: 20140207
  2. DYSPORT [Suspect]
     Indication: SKIN WRINKLING
  3. DYSPORT [Suspect]
     Indication: SKIN WRINKLING
  4. DYSPORT [Suspect]
     Indication: OFF LABEL USE

REACTIONS (14)
  - Anaphylactic reaction [Recovered/Resolved]
  - Paralysis [Recovered/Resolved]
  - Convulsion [Recovered/Resolved]
  - Blindness [Unknown]
  - Lip swelling [Unknown]
  - Pyrexia [Unknown]
  - Swelling face [Unknown]
  - Photophobia [Unknown]
  - Confusional state [Unknown]
  - Stress [Unknown]
  - Muscle spasms [Unknown]
  - Vision blurred [Recovered/Resolved]
  - Eyelid oedema [Unknown]
  - Headache [Unknown]
